FAERS Safety Report 12056641 (Version 1)
Quarter: 2016Q1

REPORT INFORMATION
  Report Type: Spontaneous
  Country: None (occurrence: US)
  Receive Date: 20160210
  Receipt Date: 20160210
  Transmission Date: 20160526
  Serious: No
  Sender: FDA-Public Use
  Company Number: US-ZYDUS-009553

PATIENT
  Sex: Female

DRUGS (7)
  1. BUDESONIDE/FORMOTEROL FUMARATE [Concomitant]
     Indication: CHRONIC OBSTRUCTIVE PULMONARY DISEASE
  2. LISINOPRIL/LISINOPRIL DIHYDRATE [Concomitant]
  3. SALBUTAMOL [Concomitant]
     Active Substance: ALBUTEROL
     Indication: CHRONIC OBSTRUCTIVE PULMONARY DISEASE
  4. ATORVASTATIN [Concomitant]
     Active Substance: ATORVASTATIN
  5. TIOTROPIUM [Concomitant]
     Active Substance: TIOTROPIUM
     Indication: CHRONIC OBSTRUCTIVE PULMONARY DISEASE
  6. METFORMIN [Concomitant]
     Active Substance: METFORMIN HYDROCHLORIDE
     Dosage: ONE HALF TABLET
     Dates: start: 2014
  7. ETODOLAC. [Suspect]
     Active Substance: ETODOLAC
     Indication: ARTHRALGIA
     Dates: end: 2014

REACTIONS (1)
  - Drug ineffective [Unknown]
